FAERS Safety Report 15440420 (Version 1)
Quarter: 2018Q3

REPORT INFORMATION
  Report Type: Spontaneous
  Country: GB (occurrence: GB)
  Receive Date: 20180928
  Receipt Date: 20180928
  Transmission Date: 20181010
  Serious: Yes (Other)
  Sender: FDA-Public Use
  Company Number: GB-ASTRAZENECA-2018SF20380

PATIENT
  Age: 65 Year
  Sex: Female
  Weight: 82.5 kg

DRUGS (16)
  1. EXENATIDE. [Suspect]
     Active Substance: EXENATIDE
     Indication: TYPE 2 DIABETES MELLITUS
     Dosage: 2.0MG UNKNOWN
     Route: 058
     Dates: start: 201702, end: 201805
  2. COCODAMOL [Concomitant]
     Active Substance: ACETAMINOPHEN\CODEINE PHOSPHATE
     Indication: BACK PAIN
     Dosage: 30/500MG. LONG TERM.
     Route: 048
  3. TIOTROPIUM [Concomitant]
     Active Substance: TIOTROPIUM
     Route: 055
  4. CARBOCISTEINE [Concomitant]
     Active Substance: CARBOCYSTEINE
  5. SERETIDE [Concomitant]
     Active Substance: FLUTICASONE PROPIONATE\SALMETEROL XINAFOATE
     Route: 055
  6. GLICLAZIDE [Concomitant]
     Active Substance: GLICLAZIDE
  7. AMLODIPINE [Concomitant]
     Active Substance: AMLODIPINE BESYLATE
     Route: 048
  8. PREGABALIN. [Concomitant]
     Active Substance: PREGABALIN
  9. ATORVASTATIN [Concomitant]
     Active Substance: ATORVASTATIN
  10. RISEDRONIC ACID [Concomitant]
     Active Substance: RISEDRONIC ACID
  11. CLOPIDOGREL [Concomitant]
     Active Substance: CLOPIDOGREL BISULFATE
     Route: 048
  12. PREDNISOLONE. [Concomitant]
     Active Substance: PREDNISOLONE
     Indication: CHRONIC OBSTRUCTIVE PULMONARY DISEASE
     Route: 048
  13. FULTIUM?D3 [Concomitant]
     Active Substance: CHOLECALCIFEROL
  14. SALBUTAMOL [Concomitant]
     Active Substance: ALBUTEROL
     Route: 055
  15. LANSOPRAZOLE. [Concomitant]
     Active Substance: LANSOPRAZOLE
  16. LISINOPRIL. [Concomitant]
     Active Substance: LISINOPRIL

REACTIONS (2)
  - Skin exfoliation [Recovering/Resolving]
  - Application site erosion [Recovering/Resolving]
